FAERS Safety Report 23955740 (Version 1)
Quarter: 2024Q2

REPORT INFORMATION
  Report Type: Report from Study
  Country: US (occurrence: US)
  Receive Date: 20240610
  Receipt Date: 20240610
  Transmission Date: 20240715
  Serious: Yes (Hospitalization, Other)
  Sender: FDA-Public Use
  Company Number: US-GILEAD-2024-0675849

PATIENT
  Sex: Female

DRUGS (1)
  1. AZTREONAM LYSINE [Suspect]
     Active Substance: AZTREONAM LYSINE
     Indication: Product used for unknown indication
     Dosage: 1 DOSAGE FORM, TID (INHALE THE CONTENTS OF 1 VIAL 3 TIMES DAILY)
     Route: 055
     Dates: start: 20230321

REACTIONS (1)
  - Pneumonia [Not Recovered/Not Resolved]
